FAERS Safety Report 5045690-8 (Version None)
Quarter: 2006Q3

REPORT INFORMATION
  Report Type: 
  Country: None (occurrence: None)
  Receive Date: 20060707
  Receipt Date: 20060616
  Transmission Date: 20061208
  Serious: Yes (Hospitalization)
  Sender: FDA-Public Use
  Company Number: FR-MERCK-0606FRA00034

PATIENT
  Age: 65 Year
  Sex: Male

DRUGS (5)
  1. PRIMAXIN [Suspect]
     Indication: ERYSIPELAS
     Route: 041
     Dates: start: 20051021, end: 20051108
  2. PRIMAXIN [Suspect]
     Indication: FASCIITIS
     Route: 041
     Dates: start: 20051021, end: 20051108
  3. VANCOMYCIN [Concomitant]
     Indication: ERYSIPELAS
     Route: 065
     Dates: start: 20051021, end: 20051113
  4. ORNIDAZOLE [Concomitant]
     Indication: ERYSIPELAS
     Route: 065
     Dates: start: 20051021, end: 20051022
  5. ORNIDAZOLE [Concomitant]
     Indication: FASCIITIS
     Route: 065
     Dates: start: 20051021, end: 20051022

REACTIONS (9)
  - C-REACTIVE PROTEIN INCREASED [None]
  - DERMATITIS BULLOUS [None]
  - DRUG ERUPTION [None]
  - HYPERCHOLESTEROLAEMIA [None]
  - LEUKOCYTOSIS [None]
  - NEPHROTIC SYNDROME [None]
  - PYREXIA [None]
  - RENAL FAILURE ACUTE [None]
  - TYPE IV HYPERSENSITIVITY REACTION [None]
